FAERS Safety Report 4980962-4 (Version None)
Quarter: 2006Q2

REPORT INFORMATION
  Report Type: 
  Country: None (occurrence: None)
  Receive Date: 20060424
  Receipt Date: 20060413
  Transmission Date: 20061013
  Serious: Yes (Other)
  Sender: FDA-Public Use
  Company Number: US-JNJFOC-20060403355

PATIENT
  Sex: Male
  Weight: 49.9 kg

DRUGS (12)
  1. REMICADE [Suspect]
     Indication: RHEUMATOID ARTHRITIS
     Route: 042
  2. ALBUTEROL [Concomitant]
  3. ARAVA [Concomitant]
  4. AZMACORT [Concomitant]
  5. DURAGESIC-100 [Concomitant]
  6. FOSAMAX [Concomitant]
  7. HYDROCODONE BITARTRATE [Concomitant]
  8. LORAZEPAM [Concomitant]
  9. PREDNISONE [Concomitant]
  10. SEREVENT [Concomitant]
  11. SYNTHROID [Concomitant]
  12. SPIRIVA [Concomitant]

REACTIONS (1)
  - PROSTATE CANCER [None]
